FAERS Safety Report 9908647 (Version 4)
Quarter: 2014Q1

REPORT INFORMATION
  Report Type: Spontaneous
  Country: NL (occurrence: NL)
  Receive Date: 20140219
  Receipt Date: 20140318
  Transmission Date: 20141002
  Serious: Yes (Life-Threatening, Other)
  Sender: FDA-Public Use
  Company Number: NL-AMGEN-NLDSP2014011552

PATIENT
  Age: 65 Year
  Sex: Female

DRUGS (9)
  1. ENBREL [Suspect]
     Indication: RHEUMATOID ARTHRITIS
     Dosage: 50 MG, UNK
     Route: 058
     Dates: start: 200610, end: 20140210
  2. ENBREL [Suspect]
     Dosage: UNK
     Route: 065
  3. IRBESARTAN [Concomitant]
     Dosage: UNK
  4. AMLODIPINE [Concomitant]
     Dosage: UNK
  5. CRESTOR [Concomitant]
     Dosage: UNK
  6. NAPROXEN [Concomitant]
     Dosage: 500 MG, AS NEEDED
     Route: 048
  7. COAPROVEL [Concomitant]
     Dosage: UNK
  8. MIZOLLEN [Concomitant]
     Dosage: UNK
  9. AMITRIPTYLINE [Concomitant]
     Dosage: UNK

REACTIONS (1)
  - Breast cancer [Not Recovered/Not Resolved]
